FAERS Safety Report 7516532-3 (Version None)
Quarter: 2011Q2

REPORT INFORMATION
  Report Type: 
  Country: None (occurrence: None)
  Receive Date: 20110601
  Receipt Date: 20110407
  Transmission Date: 20111010
  Serious: Yes (Hospitalization, Other)
  Sender: FDA-Public Use
  Company Number: B0712640A

PATIENT
  Sex: Female
  Weight: 70 kg

DRUGS (6)
  1. PAMIDRONATE DISODIUM [Suspect]
     Route: 042
     Dates: start: 20110301
  2. PAZOPANIB [Suspect]
     Dosage: 600MG PER DAY
     Route: 048
     Dates: start: 20110324
  3. NADROPARIN [Concomitant]
     Route: 058
     Dates: start: 20110316
  4. SODIUM CHLORIDE [Concomitant]
  5. DOCETAXEL [Suspect]
     Dosage: 50MGM2 PER DAY
     Route: 042
     Dates: start: 20110331
  6. APD [Concomitant]

REACTIONS (2)
  - HEPATIC ENZYME INCREASED [None]
  - DYSPNOEA [None]
